FAERS Safety Report 7005056-8 (Version None)
Quarter: 2010Q3

REPORT INFORMATION
  Report Type: 
  Country: None (occurrence: None)
  Receive Date: 20100920
  Receipt Date: 20100920
  Transmission Date: 20110219
  Serious: Yes (Hospitalization)
  Sender: FDA-Public Use
  Company Number: None

PATIENT
  Sex: Female
  Weight: 97.3 kg

DRUGS (3)
  1. FLUOROURACIL [Suspect]
     Dosage: 11085 MG
     Dates: end: 20100519
  2. ERBITUX [Suspect]
     Dosage: 2968 MG
     Dates: end: 20100526
  3. CAMPTOSAR [Suspect]
     Dosage: 710 MG
     Dates: end: 20100519

REACTIONS (2)
  - CATHETER SITE INFECTION [None]
  - CELLULITIS [None]
